FAERS Safety Report 6715044-4 (Version None)
Quarter: 2010Q2

REPORT INFORMATION
  Report Type: 
  Country: None (occurrence: None)
  Receive Date: 20100507
  Receipt Date: 20100428
  Transmission Date: 20101027
  Serious: Yes (Hospitalization)
  Sender: FDA-Public Use
  Company Number: DE-PFIZER INC-2010053375

PATIENT
  Age: 54 Year
  Sex: Male

DRUGS (13)
  1. NORVASC [Suspect]
     Indication: HYPERTENSION
     Dosage: 5 MG, UNK
     Route: 048
     Dates: start: 20090101
  2. GABAPENTIN [Suspect]
     Indication: DIABETIC NEUROPATHY
     Dosage: UNK
     Route: 048
     Dates: start: 20090403
  3. DOXYCYCLINE HYCLATE [Suspect]
     Indication: PROSTATITIS
     Dosage: 200 MG, 2X/DAY
     Route: 048
     Dates: start: 20090428, end: 20090503
  4. TRIMIPRAMINE [Suspect]
     Indication: DIABETIC NEUROPATHY
     Dosage: UNK
     Route: 048
     Dates: start: 20090403, end: 20090428
  5. DICLOFENAC [Suspect]
     Indication: PAIN
     Dosage: 50 MG, UNK
     Route: 048
     Dates: start: 20090101
  6. ACTOS [Suspect]
     Indication: DIABETES MELLITUS
     Dosage: 30 MG, UNK
     Route: 048
     Dates: start: 20090101
  7. METFOGAMMA [Suspect]
     Indication: DIABETES MELLITUS
     Dosage: 850 MG, UNK
     Route: 048
     Dates: start: 20090101
  8. CARBAMAZEPINE [Suspect]
     Indication: DIABETIC NEUROPATHY
     Dosage: 400 MG, 1X/DAY
     Route: 048
     Dates: start: 20090101
  9. LISINOPRIL [Suspect]
     Indication: HYPERTENSION
     Dosage: 20 MG, UNK
     Route: 048
     Dates: start: 20090101
  10. BISOPROLOL [Suspect]
     Indication: HYPERTENSION
     Dosage: 5 MG, UNK
     Route: 048
     Dates: start: 20090101
  11. OMEP [Suspect]
     Indication: GASTRITIS PROPHYLAXIS
     Dosage: UNK
     Route: 048
     Dates: start: 20090101
  12. CLOMIPRAMINE [Suspect]
     Indication: DIABETIC NEUROPATHY
     Dosage: 10 MG, UNK
     Route: 048
     Dates: start: 20090403
  13. FAKTU AKUT [Suspect]
     Indication: HAEMORRHOIDS
     Dosage: UNK
     Route: 061
     Dates: start: 20090401

REACTIONS (1)
  - STEVENS-JOHNSON SYNDROME [None]
